FAERS Safety Report 9708672 (Version 1)
Quarter: 2013Q4

REPORT INFORMATION
  Report Type: Spontaneous
  Country: US (occurrence: US)
  Receive Date: 20131125
  Receipt Date: 20131125
  Transmission Date: 20140711
  Serious: No
  Sender: FDA-Public Use
  Company Number: US-BAYER-2013-143581

PATIENT
  Sex: Female
  Weight: 57.6 kg

DRUGS (3)
  1. BETASERON [Suspect]
     Dosage: 0.25 MG, QOD
     Route: 058
  2. MODAFINIL [Concomitant]
     Dosage: 100 MG, UNK
  3. ASPIRIN [Concomitant]
     Dosage: 81 MG, EC

REACTIONS (7)
  - Visual impairment [Unknown]
  - Hypoaesthesia [Unknown]
  - Paraesthesia [Unknown]
  - Musculoskeletal stiffness [Unknown]
  - Muscle twitching [Unknown]
  - Mood altered [Unknown]
  - Irritability [Unknown]
